FAERS Safety Report 25503037 (Version 1)
Quarter: 2025Q3

REPORT INFORMATION
  Report Type: Spontaneous
  Country: EU (occurrence: EU)
  Receive Date: 20250702
  Receipt Date: 20250702
  Transmission Date: 20251021
  Serious: Yes (Hospitalization, Other)
  Sender: SANDOZ
  Company Number: EU-ASTELLAS-2019US035200

PATIENT
  Age: 21 Year
  Sex: Female

DRUGS (8)
  1. CYCLOPHOSPHAMIDE [Suspect]
     Active Substance: CYCLOPHOSPHAMIDE
     Indication: Allogenic stem cell transplantation
     Route: 065
  2. FLUDARABINE PHOSPHATE [Suspect]
     Active Substance: FLUDARABINE PHOSPHATE
     Indication: Allogenic stem cell transplantation
     Route: 065
  3. MYCOPHENOLATE MOFETIL [Suspect]
     Active Substance: MYCOPHENOLATE MOFETIL
     Indication: Immunosuppressant drug therapy
     Route: 065
  4. MELPHALAN [Suspect]
     Active Substance: MELPHALAN
     Indication: Allogenic stem cell transplantation
     Route: 065
  5. TACROLIMUS [Suspect]
     Active Substance: TACROLIMUS
     Indication: Allogenic stem cell transplantation
     Route: 065
  6. TACROLIMUS [Suspect]
     Active Substance: TACROLIMUS
     Indication: Immunosuppressant drug therapy
  7. THIOTEPA [Suspect]
     Active Substance: THIOTEPA
     Indication: Allogenic stem cell transplantation
     Route: 065
  8. RIBAVIRIN [Concomitant]
     Active Substance: RIBAVIRIN
     Indication: Antiviral treatment
     Dosage: 600 MG, QD (3 DOSAGES 200 MG DAILY)
     Route: 065

REACTIONS (10)
  - Bronchopulmonary aspergillosis [Recovered/Resolved]
  - Febrile neutropenia [Recovered/Resolved]
  - Cystitis haemorrhagic [Recovered/Resolved]
  - Pericarditis [Recovered/Resolved]
  - Respiratory syncytial virus infection [Recovered/Resolved]
  - BK virus infection [Recovered/Resolved]
  - Viral haemorrhagic cystitis [Recovered/Resolved]
  - Lower respiratory tract infection viral [Recovered/Resolved]
  - Lymphopenia [Recovered/Resolved]
  - Product use in unapproved indication [Unknown]
